FAERS Safety Report 5277720-2 (Version None)
Quarter: 2007Q1

REPORT INFORMATION
  Report Type: 
  Country: None (occurrence: None)
  Receive Date: 20070327
  Receipt Date: 20070315
  Transmission Date: 20070707
  Serious: Yes (Death)
  Sender: FDA-Public Use
  Company Number: US-PFIZER INC-2005041871

PATIENT
  Sex: Male
  Weight: 102.1 kg

DRUGS (2)
  1. NEURONTIN [Suspect]
     Indication: PAIN
  2. TALWIN [Suspect]

REACTIONS (2)
  - COMPLETED SUICIDE [None]
  - INTENTIONAL OVERDOSE [None]
